FAERS Safety Report 6455052-4 (Version None)
Quarter: 2009Q4

REPORT INFORMATION
  Report Type: 
  Country: None (occurrence: None)
  Receive Date: 20091118
  Receipt Date: 20091112
  Transmission Date: 20100525
  Serious: Yes (Other)
  Sender: FDA-Public Use
  Company Number: 2009SP027730

PATIENT
  Age: 84 Year
  Sex: Male
  Weight: 57 kg

DRUGS (3)
  1. ROCURONIUM BROMIDE [Suspect]
     Indication: MUSCLE RELAXANT THERAPY
     Dosage: 50 MG; IV  : 83 MG; IV
     Route: 042
  2. MIDAZOLAM HCL [Concomitant]
  3. SEVOFLURANE [Concomitant]

REACTIONS (1)
  - NEUROMUSCULAR BLOCK PROLONGED [None]
